FAERS Safety Report 6647331-2 (Version None)
Quarter: 2010Q1

REPORT INFORMATION
  Report Type: 
  Country: None (occurrence: None)
  Receive Date: 20100323
  Receipt Date: 20100317
  Transmission Date: 20100710
  Serious: Yes (Hospitalization)
  Sender: FDA-Public Use
  Company Number: B0640585A

PATIENT
  Sex: Female

DRUGS (2)
  1. AUGMENTIN [Suspect]
     Indication: DRUG USE FOR UNKNOWN INDICATION
     Route: 048
     Dates: start: 20091022, end: 20091031
  2. AMOXICILLIN [Concomitant]
     Route: 065
     Dates: start: 20091020, end: 20091001

REACTIONS (6)
  - HISTIOCYTOSIS HAEMATOPHAGIC [None]
  - OESOPHAGEAL CANDIDIASIS [None]
  - ORAL CANDIDIASIS [None]
  - PNEUMOCYSTIS JIROVECI PNEUMONIA [None]
  - PRURIGO [None]
  - RASH MACULO-PAPULAR [None]
